FAERS Safety Report 14976727 (Version 1)
Quarter: 2018Q2

REPORT INFORMATION
  Report Type: Report from Study
  Country: US (occurrence: US)
  Receive Date: 20180605
  Receipt Date: 20180605
  Transmission Date: 20180711
  Serious: No
  Sender: FDA-Public Use
  Company Number: US-ALEXION PHARMACEUTICALS INC.-A201806749

PATIENT
  Sex: Female

DRUGS (1)
  1. SOLIRIS [Suspect]
     Active Substance: ECULIZUMAB
     Indication: PRODUCT USED FOR UNKNOWN INDICATION
     Dosage: UNK
     Route: 065

REACTIONS (5)
  - Eating disorder [Unknown]
  - Fall [Recovered/Resolved]
  - Limb injury [Not Recovered/Not Resolved]
  - Candida infection [Not Recovered/Not Resolved]
  - Loss of personal independence in daily activities [Unknown]

NARRATIVE: CASE EVENT DATE: 201802
